FAERS Safety Report 5907136-4 (Version None)
Quarter: 2008Q4

REPORT INFORMATION
  Report Type: 
  Country: None (occurrence: None)
  Receive Date: 20081003
  Receipt Date: 20080925
  Transmission Date: 20090506
  Serious: Yes (Other)
  Sender: FDA-Public Use
  Company Number: DE-BAYER-200827149GPV

PATIENT

DRUGS (1)
  1. MAGNEVIST [Suspect]
     Indication: DRUG USE FOR UNKNOWN INDICATION
     Route: 065

REACTIONS (5)
  - BLISTER [None]
  - ECZEMA [None]
  - HEART RATE INCREASED [None]
  - LACRIMATION INCREASED [None]
  - SWELLING FACE [None]
